FAERS Safety Report 4516210-9 (Version None)
Quarter: 2004Q4

REPORT INFORMATION
  Report Type: 
  Country: None (occurrence: None)
  Receive Date: 20041130
  Receipt Date: 20041130
  Transmission Date: 20050328
  Serious: No
  Sender: FDA-Public Use
  Company Number: None

PATIENT
  Sex: Male

DRUGS (2)
  1. HEPARIN [Suspect]
     Indication: DEEP VEIN THROMBOSIS
     Dosage: INTRAVENOUS
     Route: 042
     Dates: start: 20040824, end: 20040828
  2. WARFARIN SODIUM [Suspect]
     Indication: DEEP VEIN THROMBOSIS
     Dosage: 5MG DAILY ORAL
     Route: 048
     Dates: start: 20040826, end: 20040828

REACTIONS (3)
  - HYPOAESTHESIA [None]
  - INCISION SITE HAEMORRHAGE [None]
  - POST PROCEDURAL HAEMATOMA [None]
